FAERS Safety Report 6414054-4 (Version None)
Quarter: 2009Q4

REPORT INFORMATION
  Report Type: 
  Country: None (occurrence: None)
  Receive Date: 20091022
  Receipt Date: 20091022
  Transmission Date: 20100525
  Serious: Yes (Hospitalization)
  Sender: FDA-Public Use
  Company Number: None

PATIENT
  Sex: Female
  Weight: 65.7716 kg

DRUGS (1)
  1. DILANTIN [Suspect]
     Indication: PARTIAL SEIZURES
     Dosage: 400MG 2X PO
     Route: 048
     Dates: start: 20090826, end: 20090927

REACTIONS (7)
  - ARRHYTHMIA [None]
  - DIZZINESS [None]
  - DYSPNOEA [None]
  - HYPERTENSION [None]
  - PRODUCT CONTAMINATION [None]
  - PRODUCT QUALITY ISSUE [None]
  - THIRST [None]
